FAERS Safety Report 4480923-8 (Version None)
Quarter: 2004Q4

REPORT INFORMATION
  Report Type: 
  Country: None (occurrence: None)
  Receive Date: 20041020
  Receipt Date: 20041020
  Transmission Date: 20050328
  Serious: Yes (Other)
  Sender: FDA-Public Use
  Company Number: None

PATIENT
  Age: 82 Year
  Sex: Female
  Weight: 79.8331 kg

DRUGS (12)
  1. MIRTAZAPINE [Suspect]
     Dosage: 15 MG
     Dates: start: 20041010, end: 20041011
  2. SYNTHROID [Concomitant]
  3. B12 [Concomitant]
  4. WARFARIN SODIUM [Concomitant]
  5. REMERON [Concomitant]
  6. TOPROL-XL [Concomitant]
  7. PEPCID [Concomitant]
  8. AMIODEROSE [Concomitant]
  9. TRAMADOLE [Concomitant]
  10. CYCLOBENZAPINE [Concomitant]
  11. STOOL SOFTNER [Concomitant]
  12. FUROSEMIDE [Concomitant]

REACTIONS (2)
  - INSOMNIA [None]
  - RESTLESSNESS [None]
